FAERS Safety Report 7351142-2 (Version None)
Quarter: 2011Q1

REPORT INFORMATION
  Report Type: 
  Country: None (occurrence: None)
  Receive Date: 20110314
  Receipt Date: 20110303
  Transmission Date: 20110831
  Serious: Yes (Hospitalization)
  Sender: FDA-Public Use
  Company Number: US-ASTRAZENECA-2011SE12110

PATIENT

DRUGS (4)
  1. NEXIUM [Suspect]
     Indication: GASTROOESOPHAGEAL REFLUX DISEASE
     Route: 048
  2. PREVACID [Concomitant]
  3. NEXIUM [Suspect]
     Indication: HIATUS HERNIA
     Route: 048
  4. ZANTAC [Concomitant]

REACTIONS (5)
  - HIATUS HERNIA [None]
  - GASTROOESOPHAGEAL REFLUX DISEASE [None]
  - VOMITING [None]
  - ROTATOR CUFF REPAIR [None]
  - OESOPHAGEAL DISORDER [None]
